FAERS Safety Report 4766304-8 (Version None)
Quarter: 2005Q3

REPORT INFORMATION
  Report Type: 
  Country: None (occurrence: None)
  Receive Date: 20050909
  Receipt Date: 20050830
  Transmission Date: 20060218
  Serious: Yes (Hospitalization)
  Sender: FDA-Public Use
  Company Number: FR 2005 0097

PATIENT
  Age: 26 Year
  Sex: Male

DRUGS (1)
  1. DOTAREM - MEGLUMINE GADOTERATE (DOTAREM) [Suspect]
     Indication: NUCLEAR MAGNETIC RESONANCE IMAGING
     Dosage: 10 ML PER DAY INTRA-VEINOUS
     Route: 042
     Dates: start: 20050822, end: 20050822

REACTIONS (5)
  - LACRIMATION INCREASED [None]
  - PHARYNGOLARYNGEAL PAIN [None]
  - POST PROCEDURAL COMPLICATION [None]
  - SNEEZING [None]
  - VOMITING [None]
